FAERS Safety Report 6252337-1 (Version None)
Quarter: 2009Q2

REPORT INFORMATION
  Report Type: 
  Country: None (occurrence: None)
  Receive Date: 20090629
  Receipt Date: 20090629
  Transmission Date: 20091009
  Serious: No
  Sender: FDA-Public Use
  Company Number: None

PATIENT
  Age: 62 Year
  Sex: Male

DRUGS (2)
  1. RIBAVIRIN [Suspect]
     Dosage: 4-5 WKS
     Dates: start: 20090401
  2. PEG-INTRON [Suspect]
     Dosage: 4-5 WKS
     Dates: start: 20090401

REACTIONS (2)
  - CONDITION AGGRAVATED [None]
  - DYSPNOEA [None]
